FAERS Safety Report 18630083 (Version 2)
Quarter: 2020Q4

REPORT INFORMATION
  Report Type: Report from Study
  Country: CO (occurrence: CO)
  Receive Date: 20201217
  Receipt Date: 20201229
  Transmission Date: 20210114
  Serious: Yes (Hospitalization)
  Sender: FDA-Public Use
  Company Number: NVSC2020CO332688

PATIENT
  Sex: Male
  Weight: 67 kg

DRUGS (5)
  1. AZATHIOPRINE. [Concomitant]
     Active Substance: AZATHIOPRINE
     Indication: IMMUNE THROMBOCYTOPENIA
     Dosage: 50 MG, Q24H
     Route: 048
     Dates: start: 202011
  2. FOLIC ACID. [Concomitant]
     Active Substance: FOLIC ACID
     Indication: IMMUNE THROMBOCYTOPENIA
     Dosage: UNK, Q24H
     Route: 048
     Dates: start: 202011
  3. REVOLADE [Suspect]
     Active Substance: ELTROMBOPAG
     Indication: IMMUNE THROMBOCYTOPENIA
     Dosage: 100 MG, QD
     Route: 048
     Dates: start: 20201114, end: 20201120
  4. REVOLADE [Suspect]
     Active Substance: ELTROMBOPAG
     Dosage: 150 MG, QD
     Route: 048
     Dates: start: 20201121, end: 202011
  5. CHLOROQUINE. [Concomitant]
     Active Substance: CHLOROQUINE
     Indication: IMMUNE THROMBOCYTOPENIA
     Dosage: UNK
     Route: 065

REACTIONS (3)
  - Product use issue [Unknown]
  - Drug ineffective [Unknown]
  - Platelet count decreased [Unknown]
